FAERS Safety Report 7311599-X (Version None)
Quarter: 2011Q1

REPORT INFORMATION
  Report Type: 
  Country: None (occurrence: None)
  Receive Date: 20110224
  Receipt Date: 20110217
  Transmission Date: 20110831
  Serious: Yes (Hospitalization, Other)
  Sender: FDA-Public Use
  Company Number: JP-PFIZER INC-2010171010

PATIENT
  Age: 73 Year
  Sex: Male
  Weight: 60 kg

DRUGS (3)
  1. SALAZOPYRIN [Suspect]
     Indication: COLITIS ULCERATIVE
     Dosage: 1500 MG, 3X/DAY
     Route: 048
     Dates: start: 20090701, end: 20101104
  2. SALAZOPYRIN [Suspect]
     Dosage: 1000 MG, 3X/DAY
     Route: 048
     Dates: start: 20070823, end: 20090701
  3. SALAZOPYRIN [Suspect]
     Dosage: 500 MG, 1X/DAY
     Dates: start: 20070823, end: 20101017

REACTIONS (9)
  - PANCYTOPENIA [None]
  - GLOSSODYNIA [None]
  - ANAEMIA MACROCYTIC [None]
  - TREMOR [None]
  - DYSGEUSIA [None]
  - DECREASED APPETITE [None]
  - VITAMIN B12 DECREASED [None]
  - LACUNAR INFARCTION [None]
  - FOLATE DEFICIENCY [None]
